FAERS Safety Report 8158541-X (Version None)
Quarter: 2012Q1

REPORT INFORMATION
  Report Type: 
  Country: None (occurrence: None)
  Receive Date: 20120217
  Receipt Date: 20120206
  Transmission Date: 20120608
  Serious: Yes (Other)
  Sender: FDA-Public Use
  Company Number: 2011MA001484

PATIENT
  Sex: Female
  Weight: 53.5244 kg

DRUGS (21)
  1. ATACAND [Concomitant]
  2. CALCIUM [Concomitant]
  3. FOLIC ACID [Concomitant]
  4. TRAZODONE HCL [Concomitant]
  5. METOCLOPRAMIDE [Suspect]
     Indication: GASTROOESOPHAGEAL REFLUX DISEASE
     Dosage: 10 MG, QID, PO
     Route: 048
     Dates: start: 20080301, end: 20090201
  6. ESTROVEN [Concomitant]
  7. ISORDIL [Concomitant]
  8. MAXIDEX [Concomitant]
  9. METHOTREXATE [Concomitant]
  10. CELEBREX [Concomitant]
  11. CRESTOR [Concomitant]
  12. IRON [Concomitant]
  13. LORAZEPAM [Concomitant]
  14. VERAPAMIL [Concomitant]
  15. CARAFATE [Concomitant]
  16. INDOMETHACIN [Concomitant]
  17. INDOCIN [Concomitant]
  18. NEXIUM [Concomitant]
  19. VITAMIN TAB [Concomitant]
  20. COREG [Concomitant]
  21. ZOVIRAX [Concomitant]

REACTIONS (46)
  - SLEEP DISORDER [None]
  - RHEUMATOID ARTHRITIS [None]
  - OSTEOARTHRITIS [None]
  - SINUS OPERATION [None]
  - FATIGUE [None]
  - HOT FLUSH [None]
  - DRY MOUTH [None]
  - DYSURIA [None]
  - RECTAL HAEMORRHAGE [None]
  - GAIT DISTURBANCE [None]
  - HIATUS HERNIA [None]
  - GRIMACING [None]
  - HYPERLIPIDAEMIA [None]
  - ANAEMIA [None]
  - INTRAOCULAR LENS IMPLANT [None]
  - PRURITUS [None]
  - DIVERTICULUM INTESTINAL [None]
  - GASTRITIS [None]
  - GASTRIC ANTRAL VASCULAR ECTASIA [None]
  - DYSKINESIA [None]
  - PERIPHERAL VASCULAR DISORDER [None]
  - ARTHRITIS [None]
  - ARTHROPATHY [None]
  - NASAL SEPTAL OPERATION [None]
  - FUNGAL INFECTION [None]
  - ASTHENIA [None]
  - RAYNAUD'S PHENOMENON [None]
  - URINARY TRACT INFECTION [None]
  - RADIAL PULSE DECREASED [None]
  - TONGUE DISORDER [None]
  - TARDIVE DYSKINESIA [None]
  - EMOTIONAL DISORDER [None]
  - HYPERTENSION [None]
  - RASH [None]
  - FAMILY STRESS [None]
  - BLADDER PROLAPSE [None]
  - CATARACT OPERATION [None]
  - MUSCULOSKELETAL PAIN [None]
  - SWELLING [None]
  - HELICOBACTER TEST POSITIVE [None]
  - MUSCLE TWITCHING [None]
  - CORONARY ARTERY DISEASE [None]
  - ARTHRALGIA [None]
  - MIDDLE INSOMNIA [None]
  - PAIN [None]
  - DUODENITIS [None]
